FAERS Safety Report 10247927 (Version 1)
Quarter: 2014Q2

REPORT INFORMATION
  Report Type: Report from Study
  Country: US (occurrence: US)
  Receive Date: 20140619
  Receipt Date: 20140619
  Transmission Date: 20141212
  Serious: Yes (Other)
  Sender: FDA-Public Use
  Company Number: US-BAXTER-2014BAX030436

PATIENT
  Age: 31 Year
  Sex: Female

DRUGS (31)
  1. CYCLOPHOSPHAMIDE FOR INJECTION, USP [Suspect]
     Indication: ACUTE LYMPHOCYTIC LEUKAEMIA
     Dosage: HCVAD REGIMEN, CYCLE 1, 150 MG/M2
     Route: 042
     Dates: start: 20140102
  2. CYCLOPHOSPHAMIDE FOR INJECTION, USP [Suspect]
     Dosage: HCVAD REGIMEN, CYCLE 2, 150 MG/M2
     Route: 042
  3. CYCLOPHOSPHAMIDE FOR INJECTION, USP [Suspect]
     Dosage: HCVAD REGIMEN, CYCLE 3, 150 MG/M2
     Route: 042
     Dates: end: 20140303
  4. MESNA FOR INJECTION 1 GRAM [Suspect]
     Indication: ACUTE LYMPHOCYTIC LEUKAEMIA
     Dosage: CYCLE 1, 300MG/M2
     Route: 065
  5. MESNA FOR INJECTION 1 GRAM [Suspect]
     Dosage: CYCLE 2, 300MG/M2
     Route: 065
  6. MESNA FOR INJECTION 1 GRAM [Suspect]
     Dosage: CYCLE 3, 300MG/M2
     Route: 065
  7. INOTUZUMAB OZOGAMICIN [Suspect]
     Indication: ACUTE LYMPHOCYTIC LEUKAEMIA
     Dosage: CYCLE 1, DAY 3
     Route: 042
     Dates: start: 20140104
  8. INOTUZUMAB OZOGAMICIN [Suspect]
     Dosage: CYCLE 2, 1.3 MG/M2, DAY 3
     Route: 042
  9. INOTUZUMAB OZOGAMICIN [Suspect]
     Dosage: CYCLE 3, 1.3 MG/M2, DAY 3
     Route: 042
     Dates: start: 20140302, end: 20140302
  10. VINCRISTINE [Suspect]
     Indication: ACUTE LYMPHOCYTIC LEUKAEMIA
     Dosage: HCVAD REGIMEN, CYCLE 1
     Route: 042
     Dates: start: 20140102
  11. VINCRISTINE [Suspect]
     Dosage: HCVAD REGIMEN, CYCLE 2
     Route: 042
  12. VINCRISTINE [Suspect]
     Dosage: HCVAD REGIMEN, CYCLE 3
     Route: 042
     Dates: end: 20140303
  13. DEXAMETHASONE [Suspect]
     Indication: ACUTE LYMPHOCYTIC LEUKAEMIA
     Dosage: HCVAD REGIMEN, CYCLE 1
     Route: 042
     Dates: start: 20140102
  14. DEXAMETHASONE [Suspect]
     Dosage: HCVAD REGIMEN, CYCLE 2
     Route: 042
  15. DEXAMETHASONE [Suspect]
     Dosage: HCVAD REGIMEN, CYCLE 3
     Route: 042
     Dates: end: 20140303
  16. MEPRON [Concomitant]
     Indication: PRODUCT USED FOR UNKNOWN INDICATION
     Route: 065
  17. CASPOFUNGIN [Concomitant]
     Indication: PRODUCT USED FOR UNKNOWN INDICATION
     Route: 065
  18. LEVAQUIN [Concomitant]
     Indication: PRODUCT USED FOR UNKNOWN INDICATION
     Route: 065
  19. MAGNESIUM [Concomitant]
     Indication: PRODUCT USED FOR UNKNOWN INDICATION
     Route: 065
  20. PROTONIX [Concomitant]
     Indication: PRODUCT USED FOR UNKNOWN INDICATION
     Route: 065
  21. PREDNISONE [Concomitant]
     Indication: PRODUCT USED FOR UNKNOWN INDICATION
     Route: 065
  22. TACROLIMUS [Concomitant]
     Indication: PRODUCT USED FOR UNKNOWN INDICATION
     Route: 065
  23. URSODIOL [Concomitant]
     Indication: PRODUCT USED FOR UNKNOWN INDICATION
     Route: 065
  24. VALTREX [Concomitant]
     Indication: PRODUCT USED FOR UNKNOWN INDICATION
     Route: 065
  25. ZOFRAN [Concomitant]
     Indication: PRODUCT USED FOR UNKNOWN INDICATION
     Route: 065
  26. OXYCODONE [Concomitant]
     Indication: PRODUCT USED FOR UNKNOWN INDICATION
     Route: 065
  27. MIRALAX [Concomitant]
     Indication: PRODUCT USED FOR UNKNOWN INDICATION
     Route: 065
  28. PHENERGAN [Concomitant]
     Indication: PRODUCT USED FOR UNKNOWN INDICATION
     Route: 065
  29. SUCRALFATE [Concomitant]
     Indication: PRODUCT USED FOR UNKNOWN INDICATION
     Route: 065
  30. AMBIEN [Concomitant]
     Indication: PRODUCT USED FOR UNKNOWN INDICATION
     Route: 065
  31. MULTIVITAMIN [Concomitant]
     Indication: PRODUCT USED FOR UNKNOWN INDICATION
     Route: 065

REACTIONS (1)
  - Venoocclusive liver disease [Not Recovered/Not Resolved]
